FAERS Safety Report 5253088-2 (Version None)
Quarter: 2007Q1

REPORT INFORMATION
  Report Type: 
  Country: None (occurrence: None)
  Receive Date: 20070301
  Receipt Date: 20070216
  Transmission Date: 20070707
  Serious: Yes (Hospitalization)
  Sender: FDA-Public Use
  Company Number: BE-ELI_LILLY_AND_COMPANY-BE200609002512

PATIENT
  Age: 64 Year
  Sex: Male

DRUGS (14)
  1. VITAMIN B-12 [Concomitant]
     Indication: PROPHYLAXIS
     Dosage: EVERY 9 WEEKS
     Route: 030
     Dates: start: 20060623
  2. FOLIC ACID [Concomitant]
     Indication: PROPHYLAXIS
     Dosage: 0.4 MG, DAILY (1/D)
     Route: 048
     Dates: start: 20060623
  3. DEXAMETHASONE [Concomitant]
     Indication: PROPHYLAXIS
     Dosage: VARIOUS 4 MG TO 125 MG
     Dates: start: 20060716
  4. SIMVASTATIN [Concomitant]
     Indication: HYPERCHOLESTEROLAEMIA
  5. PEMETREXED [Suspect]
     Indication: NON-SMALL CELL LUNG CANCER
     Dosage: 938.8 MG, EVERY 3 WEEKS
     Route: 042
     Dates: start: 20060717
  6. PEMETREXED [Suspect]
     Dosage: 679.1 MG, EVERY 3 WEEKS
     Route: 042
     Dates: start: 20060814
  7. *RADIATION [Suspect]
     Indication: NON-SMALL CELL LUNG CANCER
     Dosage: 10 GY
     Dates: start: 20060816
  8. *RADIATION [Suspect]
     Dosage: 10 GY
     Dates: start: 20060717
  9. MIXTARD /DEN/ [Concomitant]
     Indication: DIABETES MELLITUS
  10. GLUCOPHAGE [Concomitant]
     Indication: DIABETES MELLITUS
  11. ZESTRIL [Concomitant]
     Indication: HYPERTENSION
     Dosage: 20 MG, UNK
  12. AGYRAX [Concomitant]
  13. EMCONCOR                                /BEL/ [Concomitant]
     Indication: HYPERTENSION
  14. SERETIDE ^ALLEN + HANBURYS LTD^ [Concomitant]
     Indication: CHRONIC OBSTRUCTIVE PULMONARY DISEASE

REACTIONS (2)
  - FEBRILE NEUTROPENIA [None]
  - PNEUMONIA [None]
